FAERS Safety Report 12904009 (Version 1)
Quarter: 2016Q4

REPORT INFORMATION
  Report Type: Spontaneous
  Country: US (occurrence: US)
  Receive Date: 20161102
  Receipt Date: 20161102
  Transmission Date: 20170207
  Serious: Yes (Hospitalization)
  Sender: FDA-Public Use
  Company Number: US-BRISTOL-MYERS SQUIBB COMPANY-BMS-2016-090284

PATIENT
  Age: 60 Year
  Sex: Male

DRUGS (1)
  1. SPRYCEL [Suspect]
     Active Substance: DASATINIB
     Indication: LEUKAEMIA
     Dosage: 40 MG, QD
     Route: 048
     Dates: start: 20160219, end: 20161023

REACTIONS (2)
  - Underdose [Unknown]
  - Adverse event [Unknown]

NARRATIVE: CASE EVENT DATE: 20161023
